FAERS Safety Report 12692609 (Version 1)
Quarter: 2016Q3

REPORT INFORMATION
  Report Type: Spontaneous
  Country: US (occurrence: US)
  Receive Date: 20160829
  Receipt Date: 20160829
  Transmission Date: 20161109
  Serious: No
  Sender: FDA-Public Use
  Company Number: US-ASTRAZENECA-2016SE89024

PATIENT
  Age: 4 Year
  Sex: Female
  Weight: 22.7 kg

DRUGS (6)
  1. FLONASE [Concomitant]
     Active Substance: FLUTICASONE PROPIONATE
     Indication: MULTIPLE ALLERGIES
     Dosage: TOOK 1 PUFF OF FLONASE IN EACH NOSTRIL
     Route: 055
  2. PULMICORT FLEXHALER [Suspect]
     Active Substance: BUDESONIDE
     Indication: ILL-DEFINED DISORDER
     Dosage: 90 UG, ONE PUFF DAILY IN THE MORNING
     Route: 055
     Dates: start: 2015
  3. PULMICORT FLEXHALER [Suspect]
     Active Substance: BUDESONIDE
     Indication: HYPERSENSITIVITY
     Dosage: 90 UG, IF HAVING AN ALLERGY FLAREUP, 2 PUFFS IN THE MORNING
     Route: 055
     Dates: start: 2015
  4. CLARITIN [Concomitant]
     Active Substance: LORATADINE
     Indication: MULTIPLE ALLERGIES
     Dosage: DAILY AS NEEDED
     Route: 048
  5. PULMICORT FLEXHALER [Suspect]
     Active Substance: BUDESONIDE
     Indication: ILL-DEFINED DISORDER
     Dosage: 90 UG, IF HAVING AN ALLERGY FLAREUP, 2 PUFFS IN THE MORNING
     Route: 055
     Dates: start: 2015
  6. PULMICORT FLEXHALER [Suspect]
     Active Substance: BUDESONIDE
     Indication: HYPERSENSITIVITY
     Dosage: 90 UG, ONE PUFF DAILY IN THE MORNING
     Route: 055
     Dates: start: 2015

REACTIONS (5)
  - Drug dose omission [Unknown]
  - Off label use [Unknown]
  - Product use issue [Unknown]
  - Product quality issue [Unknown]
  - Cough [Unknown]

NARRATIVE: CASE EVENT DATE: 2015
